FAERS Safety Report 13923954 (Version 11)
Quarter: 2018Q4

REPORT INFORMATION
  Report Type: Spontaneous
  Country: US (occurrence: US)
  Receive Date: 20170831
  Receipt Date: 20181001
  Transmission Date: 20190204
  Serious: Yes (Hospitalization, Other)
  Sender: FDA-Public Use
  Company Number: US-PFIZER INC-2017374759

PATIENT
  Age: 77 Year
  Sex: Male
  Weight: 91.61 kg

DRUGS (24)
  1. SUTENT [Suspect]
     Active Substance: SUNITINIB MALATE
     Dosage: 50 MG, CYCLIC (28 DAYS ON/14 DAYS OFF)
     Dates: start: 20170824
  2. SUTENT [Suspect]
     Active Substance: SUNITINIB MALATE
     Dosage: 50 MG, DAILY [TWO DAILY]
     Dates: start: 20170822, end: 20180614
  3. DOXAZOSIN [Concomitant]
     Active Substance: DOXAZOSIN\DOXAZOSIN MESYLATE
     Dosage: 8 MG, UNK
  4. PROSCAR [Concomitant]
     Active Substance: FINASTERIDE
     Dosage: UNK
  5. AMLODIPINE [Concomitant]
     Active Substance: AMLODIPINE BESYLATE
     Dosage: UNK
  6. C PLUS [Concomitant]
     Indication: VITAMIN SUPPLEMENTATION
     Dosage: UNK
  7. COZAAR [Concomitant]
     Active Substance: LOSARTAN POTASSIUM
     Dosage: UNK
  8. SALMON OIL [Concomitant]
     Active Substance: FISH OIL
     Dosage: UNK
  9. SUTENT [Suspect]
     Active Substance: SUNITINIB MALATE
     Dosage: UNK
     Dates: start: 20170919, end: 20171002
  10. LIPITOR [Concomitant]
     Active Substance: ATORVASTATIN CALCIUM
     Dosage: UNK
  11. VALIUM [Concomitant]
     Active Substance: DIAZEPAM
     Dosage: UNK
  12. SUTENT [Suspect]
     Active Substance: SUNITINIB MALATE
     Dosage: UNK
     Dates: start: 20171226
  13. SUTENT [Suspect]
     Active Substance: SUNITINIB MALATE
     Dosage: UNK
     Dates: start: 20171212
  14. DOXAZOSIN [Concomitant]
     Active Substance: DOXAZOSIN\DOXAZOSIN MESYLATE
     Dosage: 4 MG, UNK
  15. LUTEIN [Concomitant]
     Active Substance: LUTEIN
     Dosage: UNK
  16. ZINC. [Concomitant]
     Active Substance: ZINC
     Dosage: UNK
  17. COMPAZINE [Concomitant]
     Active Substance: PROCHLORPERAZINE MALEATE
     Dosage: UNK
  18. SUTENT [Suspect]
     Active Substance: SUNITINIB MALATE
     Dosage: UNK
     Dates: start: 20171003, end: 20171030
  19. LEVOTHYROXINE. [Concomitant]
     Active Substance: LEVOTHYROXINE
     Dosage: 137 MG, UNK
  20. LEVOTHYROXINE. [Concomitant]
     Active Substance: LEVOTHYROXINE
     Dosage: 150 MG, UNK
  21. SUTENT [Suspect]
     Active Substance: SUNITINIB MALATE
     Indication: RENAL CANCER STAGE IV
     Dosage: 50 MG, CYCLIC (28 DAYS ON/14 DAYS OFF)
     Dates: start: 20170822, end: 201708
  22. SUTENT [Suspect]
     Active Substance: SUNITINIB MALATE
     Dosage: UNK
     Dates: start: 20171114, end: 20171211
  23. VITAMIN B [Concomitant]
     Active Substance: VITAMIN B
     Dosage: UNK
  24. ATIVAN [Concomitant]
     Active Substance: LORAZEPAM
     Dosage: UNK

REACTIONS (60)
  - Nausea [Recovered/Resolved]
  - Haemorrhoids [Unknown]
  - Dry mouth [Unknown]
  - Proctalgia [Unknown]
  - Sinus congestion [Unknown]
  - Back pain [Unknown]
  - Glossodynia [Unknown]
  - Vertigo [Unknown]
  - Flatulence [Not Recovered/Not Resolved]
  - Tongue discomfort [Unknown]
  - Palmar-plantar erythrodysaesthesia syndrome [Unknown]
  - Decreased appetite [Recovering/Resolving]
  - Weight decreased [Unknown]
  - Feeling abnormal [Unknown]
  - Fluid retention [Unknown]
  - Gingival pain [Unknown]
  - Hyperkeratosis [Unknown]
  - Nocturia [Not Recovered/Not Resolved]
  - Abdominal discomfort [Not Recovered/Not Resolved]
  - Anal inflammation [Unknown]
  - Swelling face [Not Recovered/Not Resolved]
  - Tongue erythema [Unknown]
  - Night sweats [Unknown]
  - Ear swelling [Unknown]
  - Oral discomfort [Unknown]
  - Arthralgia [Not Recovered/Not Resolved]
  - Penile haemorrhage [Unknown]
  - Body temperature decreased [Unknown]
  - Ear pain [Unknown]
  - Periorbital swelling [Unknown]
  - Lethargy [Not Recovered/Not Resolved]
  - Dysgeusia [Not Recovered/Not Resolved]
  - Dry skin [Not Recovered/Not Resolved]
  - Skin disorder [Unknown]
  - Diarrhoea [Not Recovered/Not Resolved]
  - Blood glucose increased [Unknown]
  - Blood blister [Not Recovered/Not Resolved]
  - Peripheral swelling [Recovered/Resolved]
  - Sleep disorder [Recovered/Resolved]
  - Fatigue [Unknown]
  - Somnolence [Unknown]
  - Oral pain [Unknown]
  - Eye oedema [Unknown]
  - Paraesthesia [Unknown]
  - Dyspepsia [Not Recovered/Not Resolved]
  - Rash [Unknown]
  - Swelling [Unknown]
  - Eructation [Unknown]
  - Rectal discharge [Unknown]
  - Anorectal discomfort [Not Recovered/Not Resolved]
  - Feeling cold [Unknown]
  - Anorectal disorder [Recovered/Resolved]
  - Skin reaction [Unknown]
  - Tenderness [Recovered/Resolved]
  - Chest discomfort [Unknown]
  - Pruritus [Unknown]
  - Laziness [Unknown]
  - Drug intolerance [Unknown]
  - Sensitivity of teeth [Unknown]
  - Weight increased [Unknown]

NARRATIVE: CASE EVENT DATE: 2017
